FAERS Safety Report 9480797 (Version 2)
Quarter: 2013Q3

REPORT INFORMATION
  Report Type: Spontaneous
  Country: US (occurrence: US)
  Receive Date: 20130828
  Receipt Date: 20130828
  Transmission Date: 20140515
  Serious: Yes (Hospitalization, Other)
  Sender: FDA-Public Use
  Company Number: US-AMGEN-KDL112360

PATIENT
  Age: 69 Year
  Sex: Female

DRUGS (7)
  1. ENBREL [Suspect]
     Indication: PSORIASIS
     Dosage: 25 MG, 2 TIMES/WK
     Route: 058
     Dates: start: 20030123
  2. LANSOPRAZOLE [Concomitant]
  3. ESTROGENS CONJUGATED [Concomitant]
  4. MEDROXYPROGESTERONE ACETATE [Concomitant]
  5. LEVOTHYROXINE SODIUM [Concomitant]
  6. RISEDRONATE SODIUM [Concomitant]
  7. BUPROPION [Concomitant]

REACTIONS (2)
  - Abdominoplasty [Unknown]
  - Post procedural infection [Unknown]
